FAERS Safety Report 9121504 (Version 2)
Quarter: 2013Q1

REPORT INFORMATION
  Report Type: Spontaneous
  Country: CO (occurrence: CO)
  Receive Date: 20130104
  Receipt Date: 20130107
  Transmission Date: 20140127
  Serious: Yes (Other)
  Sender: FDA-Public Use
  Company Number: CO-VERTEX PHARMACEUTICALS INC.-2012-026122

PATIENT
  Age: 67 Year
  Sex: Female
  Weight: 53 kg

DRUGS (3)
  1. INCIVO [Suspect]
     Indication: HEPATITIS C
     Dosage: DOSAGE FORM: TABLET
     Route: 048
  2. INTERFERON ALFA [Concomitant]
     Route: 065
  3. RIBAVIRIN [Concomitant]
     Route: 065

REACTIONS (6)
  - Neutrophil count decreased [Unknown]
  - Platelet count decreased [Unknown]
  - Rash [Unknown]
  - Discomfort [Unknown]
  - Malaise [Unknown]
  - Haemoglobin decreased [Unknown]
